FAERS Safety Report 7954649-X (Version None)
Quarter: 2011Q4

REPORT INFORMATION
  Report Type: 
  Country: None (occurrence: None)
  Receive Date: 20111202
  Receipt Date: 20111128
  Transmission Date: 20120403
  Serious: Yes (Other)
  Sender: FDA-Public Use
  Company Number: PHHY2011JP104890

PATIENT
  Age: 67 Year
  Sex: Female

DRUGS (2)
  1. ZOMETA [Suspect]
  2. AREDIA [Suspect]

REACTIONS (2)
  - PERIODONTAL DISEASE [None]
  - OSTEONECROSIS OF JAW [None]
